FAERS Safety Report 9858085 (Version 2)
Quarter: 2014Q1

REPORT INFORMATION
  Report Type: Spontaneous
  Country: IT (occurrence: IT)
  Receive Date: 20140131
  Receipt Date: 20140303
  Transmission Date: 20141002
  Serious: Yes (Life-Threatening)
  Sender: FDA-Public Use
  Company Number: IT-TEVA-457680ISR

PATIENT
  Age: 71 Year
  Sex: Male

DRUGS (8)
  1. METFORMINA TEVA 500 MG [Suspect]
     Indication: DIABETES MELLITUS
     Dosage: 2000 MILLIGRAM DAILY;
     Route: 048
  2. CARDIOASPIRIN 100 MG [Concomitant]
     Dosage: 100 MILLIGRAM DAILY; GASTRORESISTANT TABLET
     Route: 048
  3. SOLOSA 1 MG [Concomitant]
     Dosage: 1 MILLIGRAM DAILY;
     Route: 048
  4. CONGESCOR 10 MG [Concomitant]
     Dosage: 10 MILLIGRAM DAILY;
     Route: 048
  5. LYRICA 25 MG [Concomitant]
     Dosage: 25 MILLIGRAM DAILY;
     Route: 048
  6. TRIATEC 2.5 MG [Concomitant]
     Dosage: 2.5 MILLIGRAM DAILY; DIVISIBLE TABLET
     Route: 048
  7. LASIX 25 MG [Concomitant]
     Dosage: 75 MILLIGRAM DAILY;
     Route: 048
  8. LEVEMIR 100 U/ML [Concomitant]
     Indication: DIABETES MELLITUS
     Dosage: 30 IU (INTERNATIONAL UNIT) DAILY;
     Route: 058

REACTIONS (3)
  - Lactic acidosis [Recovering/Resolving]
  - Anuria [Recovering/Resolving]
  - Hyperkalaemia [Recovering/Resolving]
